FAERS Safety Report 4810668-3 (Version None)
Quarter: 2005Q4

REPORT INFORMATION
  Report Type: 
  Country: None (occurrence: None)
  Receive Date: 20051026
  Receipt Date: 20050414
  Transmission Date: 20060501
  Serious: Yes (Hospitalization, Disabling)
  Sender: FDA-Public Use
  Company Number: US-MERCK-0504USA03139

PATIENT
  Age: 65 Year
  Sex: Female
  Weight: 133 kg

DRUGS (6)
  1. VIOXX [Suspect]
     Indication: ARTHRITIS
     Route: 048
     Dates: start: 20000801, end: 20001201
  2. VIOXX [Suspect]
     Route: 048
     Dates: start: 20030201
  3. ASPIRIN [Concomitant]
     Route: 065
  4. DIOVAN [Concomitant]
     Route: 065
  5. LOPRESSOR [Concomitant]
     Route: 065
  6. QUININE [Concomitant]
     Route: 065

REACTIONS (10)
  - AORTIC VALVE INCOMPETENCE [None]
  - ATRIAL FIBRILLATION [None]
  - CAROTID ARTERY STENOSIS [None]
  - CATARACT [None]
  - CORONARY ARTERY DISEASE [None]
  - CORONARY ARTERY OCCLUSION [None]
  - CORONARY ARTERY STENOSIS [None]
  - INJURY [None]
  - MYOCARDIAL INFARCTION [None]
  - POST PROCEDURAL COMPLICATION [None]
